FAERS Safety Report 12261483 (Version 4)
Quarter: 2016Q2

REPORT INFORMATION
  Report Type: Report from Study
  Country: US (occurrence: US)
  Receive Date: 20160412
  Receipt Date: 20160613
  Transmission Date: 20160815
  Serious: No
  Sender: FDA-Public Use
  Company Number: US-AMGEN-USASL2016043140

PATIENT
  Age: 10 Year
  Sex: Male
  Weight: 124 kg

DRUGS (2)
  1. ENBREL [Suspect]
     Active Substance: ETANERCEPT
     Indication: PSORIATIC ARTHROPATHY
     Dosage: 50 MG, QWK
     Route: 065
     Dates: start: 20160329
  2. ENBREL [Suspect]
     Active Substance: ETANERCEPT
     Indication: PSORIASIS

REACTIONS (7)
  - Mood swings [Unknown]
  - Oropharyngeal pain [Unknown]
  - Fatigue [Unknown]
  - Skin exfoliation [Unknown]
  - Off label use [Unknown]
  - Injection site pain [Unknown]
  - Oral pain [Unknown]

NARRATIVE: CASE EVENT DATE: 2016
